FAERS Safety Report 24253385 (Version 1)
Quarter: 2024Q3

REPORT INFORMATION
  Report Type: Spontaneous
  Country: PL (occurrence: PL)
  Receive Date: 20240827
  Receipt Date: 20240827
  Transmission Date: 20241017
  Serious: Yes (Other)
  Sender: RANBAXY
  Company Number: PL-URPL-1-2628-2020

PATIENT
  Age: 79 Year
  Sex: Female
  Weight: 75 kg

DRUGS (1)
  1. ERLOTINIB [Suspect]
     Active Substance: ERLOTINIB
     Indication: Lung neoplasm malignant
     Dosage: 150 MILLIGRAM
     Route: 048
     Dates: start: 20190416

REACTIONS (6)
  - Dry skin [Unknown]
  - Vomiting [Unknown]
  - Asthenia [Unknown]
  - Onychomycosis [Unknown]
  - Gastrointestinal motility disorder [Unknown]
  - Skin fissures [Unknown]
